FAERS Safety Report 6902004-3 (Version None)
Quarter: 2010Q3

REPORT INFORMATION
  Report Type: 
  Country: None (occurrence: None)
  Receive Date: 20100803
  Receipt Date: 20080415
  Transmission Date: 20110219
  Serious: No
  Sender: FDA-Public Use
  Company Number: US-PFIZER INC-2008033679

PATIENT
  Sex: Female
  Weight: 61.7 kg

DRUGS (13)
  1. LYRICA [Suspect]
     Indication: BACK PAIN
     Dates: start: 20080326, end: 20080401
  2. LEVOXYL [Concomitant]
  3. ATENOLOL [Concomitant]
  4. ACIPHEX [Concomitant]
  5. FOSAMAX PLUS D [Concomitant]
  6. GENOTROPIN [Concomitant]
  7. ZOCOR [Concomitant]
  8. ESTROGENS SOL/INJ [Concomitant]
  9. ALL OTHER THERAPEUTIC PRODUCTS [Concomitant]
  10. WELLBUTRIN [Concomitant]
  11. CITALOPRAM [Concomitant]
  12. TRAZODONE [Concomitant]
  13. BACLOFEN [Concomitant]

REACTIONS (2)
  - DRUG INEFFECTIVE [None]
  - WEIGHT INCREASED [None]
